FAERS Safety Report 4649635-1 (Version None)
Quarter: 2005Q2

REPORT INFORMATION
  Report Type: 
  Country: None (occurrence: None)
  Receive Date: 20050502
  Receipt Date: 20041005
  Transmission Date: 20051028
  Serious: Yes (Hospitalization)
  Sender: FDA-Public Use
  Company Number: 200511247JP

PATIENT
  Age: 70 Year
  Sex: Female

DRUGS (5)
  1. ARAVA [Suspect]
     Indication: RHEUMATOID ARTHRITIS
     Route: 048
     Dates: start: 20040511, end: 20040912
  2. ALEVIATIN [Suspect]
     Indication: TEMPORAL LOBE EPILEPSY
  3. PREDNISOLONE [Concomitant]
     Indication: RHEUMATOID ARTHRITIS
     Route: 048
  4. FLUCAM [Concomitant]
     Indication: RHEUMATOID ARTHRITIS
     Route: 048
  5. AZULFIDINE [Concomitant]
     Indication: RHEUMATOID ARTHRITIS
     Route: 048
     Dates: start: 20050405

REACTIONS (6)
  - ALOPECIA [None]
  - ASTHENIA [None]
  - DIFFICULTY IN WALKING [None]
  - DYSGEUSIA [None]
  - RASH [None]
  - SWELLING FACE [None]
